FAERS Safety Report 10027699 (Version 1)
Quarter: 2014Q1

REPORT INFORMATION
  Report Type: Spontaneous
  Country: US (occurrence: US)
  Receive Date: 20140321
  Receipt Date: 20140321
  Transmission Date: 20141002
  Serious: Yes (Other)
  Sender: FDA-Public Use
  Company Number: US-MALLINCKRODT-T201301638

PATIENT
  Sex: Female

DRUGS (3)
  1. METHADONE [Suspect]
     Indication: PRODUCT USED FOR UNKNOWN INDICATION
     Route: 048
  2. MORPHINE [Concomitant]
     Indication: PAIN
     Dosage: 30 MG, QID
     Route: 048
  3. OXYCONTIN [Concomitant]
     Indication: PAIN
     Dosage: 20 MG, TID
     Route: 048

REACTIONS (2)
  - Drug diversion [Unknown]
  - Intentional drug misuse [Unknown]
